FAERS Safety Report 23931276 (Version 2)
Quarter: 2024Q2

REPORT INFORMATION
  Report Type: Spontaneous
  Country: HU (occurrence: HU)
  Receive Date: 20240603
  Receipt Date: 20240629
  Transmission Date: 20240716
  Serious: Yes (Hospitalization, Other)
  Sender: FDA-Public Use
  Company Number: HU-ABBVIE-5782652

PATIENT
  Age: 46 Year
  Sex: Female
  Weight: 87 kg

DRUGS (1)
  1. RINVOQ [Suspect]
     Active Substance: UPADACITINIB
     Indication: Rheumatoid arthritis
     Dosage: FORM STRENGTH: 15 MILLIGRAM
     Route: 048
     Dates: start: 20230125, end: 202405

REACTIONS (16)
  - Intervertebral disc protrusion [Unknown]
  - Intervertebral disc disorder [Unknown]
  - Urinary incontinence [Recovering/Resolving]
  - Movement disorder [Recovering/Resolving]
  - Demyelination [Unknown]
  - Myelitis [Unknown]
  - Oligoclonal gammopathy [Unknown]
  - Hypoaesthesia [Unknown]
  - Dizziness [Recovering/Resolving]
  - Muscular weakness [Recovering/Resolving]
  - Paraesthesia [Unknown]
  - Spinal osteoarthritis [Unknown]
  - Walking aid user [Unknown]
  - Guillain-Barre syndrome [Unknown]
  - Multiple sclerosis [Unknown]
  - Lymphoma [Unknown]

NARRATIVE: CASE EVENT DATE: 20240501
